FAERS Safety Report 12663338 (Version 1)
Quarter: 2016Q3

REPORT INFORMATION
  Report Type: Spontaneous
  Country: US (occurrence: None)
  Receive Date: 20160817
  Receipt Date: 20160817
  Transmission Date: 20161109
  Serious: Yes (Death)
  Sender: FDA-Public Use
  Company Number: None

PATIENT
  Age: 73 Year
  Sex: Female

DRUGS (1)
  1. OCTREOTIDE 50MCG/ML [Suspect]
     Active Substance: OCTREOTIDE
     Route: 058
     Dates: start: 20160617, end: 20160801

REACTIONS (1)
  - Death [None]

NARRATIVE: CASE EVENT DATE: 20160813
